FAERS Safety Report 7558370-1 (Version None)
Quarter: 2011Q2

REPORT INFORMATION
  Report Type: 
  Country: None (occurrence: None)
  Receive Date: 20110620
  Receipt Date: 20110608
  Transmission Date: 20111010
  Serious: Yes (Hospitalization)
  Sender: FDA-Public Use
  Company Number: PHHY2011US51000

PATIENT
  Age: 23 Year
  Sex: Male

DRUGS (2)
  1. TOBI [Suspect]
     Dosage: UNK
  2. TOBI [Suspect]
     Dosage: 300 MG, BID
     Dates: start: 20090617, end: 20110223

REACTIONS (2)
  - INFECTION [None]
  - MULTIPLE SCLEROSIS [None]
